FAERS Safety Report 17471885 (Version 1)
Quarter: 2020Q1

REPORT INFORMATION
  Report Type: Spontaneous
  Country: US (occurrence: US)
  Receive Date: 20200228
  Receipt Date: 20200228
  Transmission Date: 20200409
  Serious: No
  Sender: FDA-Public Use
  Company Number: US-JNJFOC-20200220938

PATIENT
  Sex: Male
  Weight: 70.37 kg

DRUGS (1)
  1. PEPCID COMPLETE [Suspect]
     Active Substance: CALCIUM CARBONATE\FAMOTIDINE\MAGNESIUM HYDROXIDE
     Indication: GASTROOESOPHAGEAL REFLUX DISEASE
     Dosage: 2-3 TABLETS WHENEVER NEEDED
     Route: 048
     Dates: end: 20200210

REACTIONS (2)
  - Incorrect dose administered [Unknown]
  - Adverse event [Recovered/Resolved]
